FAERS Safety Report 4967983-2 (Version None)
Quarter: 2006Q2

REPORT INFORMATION
  Report Type: 
  Country: None (occurrence: None)
  Receive Date: 20060403
  Receipt Date: 20060318
  Transmission Date: 20061013
  Serious: Yes (Hospitalization)
  Sender: FDA-Public Use
  Company Number: 2006PV010465

PATIENT
  Sex: Male

DRUGS (2)
  1. SYMLIN [Suspect]
     Indication: DIABETES MELLITUS INSULIN-DEPENDENT
     Dosage: UNKNOWN; TID; SC
     Route: 058
     Dates: end: 20060315
  2. INSULIN [Concomitant]

REACTIONS (5)
  - BLOOD GLUCOSE INCREASED [None]
  - ORAL INTAKE REDUCED [None]
  - RENAL DISORDER [None]
  - TOOTH INFECTION [None]
  - URINARY TRACT INFECTION [None]
